FAERS Safety Report 20490947 (Version 1)
Quarter: 2022Q1

REPORT INFORMATION
  Report Type: Spontaneous
  Country: US (occurrence: None)
  Receive Date: 20220218
  Receipt Date: 20220218
  Transmission Date: 20220423
  Serious: Yes (Other)
  Sender: FDA-Public Use
  Company Number: None

PATIENT
  Age: 49 Year
  Sex: Female

DRUGS (2)
  1. HUMIRA [Suspect]
     Active Substance: ADALIMUMAB
     Indication: Rheumatoid arthritis
     Dosage: 40MG/0.4ML?INJECT 1 PEN UNDER THE SKIN (SUBCUTANEOUS INJECTION) EVERY TWO WEEKS? ?
     Route: 058
     Dates: start: 20200205
  2. HUMIRA [Suspect]
     Active Substance: ADALIMUMAB
     Dosage: OTHER QUANTITY : 1 PEN;?FREQUENCY : EVERY OTHER WEEK;?
     Route: 058

REACTIONS (1)
  - Seizure [None]

NARRATIVE: CASE EVENT DATE: 20220204
